FAERS Safety Report 16279182 (Version 1)
Quarter: 2019Q2

REPORT INFORMATION
  Report Type: Spontaneous
  Country: US (occurrence: US)
  Receive Date: 20190506
  Receipt Date: 20190506
  Transmission Date: 20190711
  Serious: No
  Sender: FDA-Public Use
  Company Number: PHEH2019US018786

PATIENT
  Age: 52 Year
  Sex: Female

DRUGS (1)
  1. MEKINIST [Suspect]
     Active Substance: TRAMETINIB DIMETHYL SULFOXIDE
     Indication: OVARIAN CANCER
     Dosage: 0.5 MG, QD
     Route: 048
     Dates: start: 20180706

REACTIONS (3)
  - Medication error [Unknown]
  - Nausea [Unknown]
  - Emotional disorder [Unknown]
